FAERS Safety Report 7167951-9 (Version None)
Quarter: 2010Q4

REPORT INFORMATION
  Report Type: 
  Country: None (occurrence: None)
  Receive Date: 20101216
  Receipt Date: 20101213
  Transmission Date: 20110411
  Serious: Yes (Death, Hospitalization, Other)
  Sender: FDA-Public Use
  Company Number: US-PFIZER INC-2010080969

PATIENT
  Sex: Female
  Weight: 94.55 kg

DRUGS (4)
  1. DILANTIN [Suspect]
     Indication: GRAND MAL CONVULSION
     Dosage: 300 MG, 1X/DAY
     Route: 048
     Dates: start: 20100121, end: 20100218
  2. DILANTIN [Suspect]
     Dosage: 100 MG, 3X/DAY
     Route: 042
     Dates: start: 20100217
  3. ROCEPHIN [Concomitant]
     Dosage: UNK
     Dates: start: 20100216
  4. AZITHROMYCIN [Concomitant]
     Dosage: UNK
     Dates: start: 20100216

REACTIONS (1)
  - STEVENS-JOHNSON SYNDROME [None]
